FAERS Safety Report 5601965-2 (Version None)
Quarter: 2008Q1

REPORT INFORMATION
  Report Type: 
  Country: None (occurrence: None)
  Receive Date: 20080125
  Receipt Date: 20080121
  Transmission Date: 20080703
  Serious: Yes (Hospitalization)
  Sender: FDA-Public Use
  Company Number: JP-BAYER-200717881GPV

PATIENT
  Age: 40 Year
  Sex: Female

DRUGS (7)
  1. BETASERON [Suspect]
     Indication: MYELITIS
     Route: 058
     Dates: start: 20041005, end: 20041211
  2. PREDNISOLONE [Concomitant]
     Indication: RELAPSING-REMITTING MULTIPLE SCLEROSIS
     Dosage: AS USED: 30 MG/D
     Route: 048
     Dates: start: 20040415, end: 20041004
  3. PREDNISOLONE [Concomitant]
     Dosage: AS USED: 20 MG/D
     Route: 048
     Dates: start: 20041005
  4. GASTER [Concomitant]
     Indication: PROPHYLAXIS
     Dosage: AS USED: 20 MG/D
     Route: 048
     Dates: start: 20040415
  5. ALFAROL [Concomitant]
     Indication: PROPHYLAXIS
     Dosage: AS USED: 1 ?G/D
     Route: 048
     Dates: start: 20040405, end: 20041004
  6. ALFAROL [Concomitant]
     Dosage: AS USED: 1 ?G/D
     Route: 048
     Dates: start: 20041005
  7. JUVELA [Concomitant]
     Indication: RELAPSING-REMITTING MULTIPLE SCLEROSIS
     Route: 065
     Dates: start: 20040415

REACTIONS (8)
  - BLOOD CHOLESTEROL INCREASED [None]
  - DISEASE PROGRESSION [None]
  - HEADACHE [None]
  - HEMIANOPIA [None]
  - HYPOAESTHESIA [None]
  - LEUKOENCEPHALOPATHY [None]
  - NEUROMYELITIS OPTICA [None]
  - PYREXIA [None]
